FAERS Safety Report 9047628 (Version 2)
Quarter: 2013Q2

REPORT INFORMATION
  Report Type: Spontaneous
  Country: US (occurrence: US)
  Receive Date: 20130204
  Receipt Date: 20130404
  Transmission Date: 20140414
  Serious: No
  Sender: FDA-Public Use
  Company Number: US-AMGEN-USASP2013004168

PATIENT
  Age: 33 Year
  Sex: Female
  Weight: 117.91 kg

DRUGS (6)
  1. ENBREL [Suspect]
     Indication: RHEUMATOID ARTHRITIS
     Dosage: 50 MG, QWK
     Route: 058
     Dates: start: 20110101
  2. METHOTREXATE [Concomitant]
     Dosage: UNK
     Dates: end: 201210
  3. VITAMIN D /00107901/ [Concomitant]
     Dosage: 400 UNIT, UNK
  4. PLAQUENIL                          /00072602/ [Concomitant]
     Dosage: 200 MG, UNK
  5. PROCARDIA                          /00340701/ [Concomitant]
     Dosage: 30 MG, UNK
  6. IBU [Concomitant]
     Dosage: 400 MG, UNK

REACTIONS (3)
  - Hepatic enzyme increased [Not Recovered/Not Resolved]
  - Herpes zoster [Recovered/Resolved]
  - Pneumonia [Unknown]
